FAERS Safety Report 24780717 (Version 1)
Quarter: 2024Q4

REPORT INFORMATION
  Report Type: Report from Study
  Country: NL (occurrence: NL)
  Receive Date: 20241227
  Receipt Date: 20241227
  Transmission Date: 20250114
  Serious: Yes (Death)
  Sender: ROCHE
  Company Number: NL-ROCHE-10000165207

PATIENT

DRUGS (3)
  1. COBIMETINIB [Suspect]
     Active Substance: COBIMETINIB
     Indication: Histiocytosis
     Route: 065
  2. VEMURAFENIB [Suspect]
     Active Substance: VEMURAFENIB
     Indication: Histiocytosis
     Route: 065
  3. PREDNISONE [Suspect]
     Active Substance: PREDNISONE
     Indication: Histiocytosis
     Route: 065

REACTIONS (4)
  - Small intestinal haemorrhage [Fatal]
  - Photosensitivity reaction [Unknown]
  - Pneumonitis [Unknown]
  - Off label use [Unknown]
